FAERS Safety Report 4692304-2 (Version None)
Quarter: 2005Q2

REPORT INFORMATION
  Report Type: 
  Country: None (occurrence: None)
  Receive Date: 20050614
  Receipt Date: 20050602
  Transmission Date: 20051028
  Serious: Yes (Hospitalization)
  Sender: FDA-Public Use
  Company Number: 2005082657

PATIENT
  Age: 35 Year
  Sex: Male

DRUGS (1)
  1. ZITHROMAX [Suspect]
     Indication: ILL-DEFINED DISORDER
     Dosage: 500 MG DAILY ORAL
     Route: 048

REACTIONS (7)
  - ABDOMINAL PAIN UPPER [None]
  - JAUNDICE [None]
  - LIPASE INCREASED [None]
  - LIPID METABOLISM DISORDER [None]
  - LIVER DISORDER [None]
  - SKIN EXFOLIATION [None]
  - SPLENOMEGALY [None]
